FAERS Safety Report 5901005-1 (Version None)
Quarter: 2008Q3

REPORT INFORMATION
  Report Type: 
  Country: None (occurrence: None)
  Receive Date: 20080929
  Receipt Date: 20080917
  Transmission Date: 20090109
  Serious: Yes (Death)
  Sender: FDA-Public Use
  Company Number: JP-BRISTOL-MYERS SQUIBB COMPANY-14347124

PATIENT

DRUGS (5)
  1. TAXOL [Suspect]
     Indication: PROSTATE CANCER
     Route: 041
  2. PARAPLATIN [Suspect]
     Indication: PROSTATE CANCER
     Dosage: AREA UNDER CURVE OF 6 ON DAY1 OF EVERY 4-WEEK CYCLE.
     Route: 041
  3. DOCETAXEL [Suspect]
     Indication: PROSTATE CANCER
     Route: 042
  4. ESTRAMUSTINE PHOSPHATE SODIUM [Suspect]
     Indication: PROSTATE CANCER
     Route: 048
  5. DEXAMETHASONE SODIUM PHOSPHATE [Concomitant]
     Route: 042

REACTIONS (1)
  - INTERSTITIAL LUNG DISEASE [None]
